FAERS Safety Report 11206179 (Version 1)
Quarter: 2015Q2

REPORT INFORMATION
  Report Type: Spontaneous
  Country: FR (occurrence: FR)
  Receive Date: 20150622
  Receipt Date: 20150622
  Transmission Date: 20150821
  Serious: Yes (Other)
  Sender: FDA-Public Use
  Company Number: FR-PFIZER INC-2015200996

PATIENT
  Age: 82 Year
  Sex: Female

DRUGS (4)
  1. LYRICA [Suspect]
     Active Substance: PREGABALIN
     Dosage: 50 MG, 2X/DAY
  2. LYRICA [Suspect]
     Active Substance: PREGABALIN
     Dosage: 50 MG, DAILY
     Dates: end: 201506
  3. DIAMICRON [Concomitant]
     Active Substance: GLICLAZIDE
     Indication: TYPE 2 DIABETES MELLITUS
     Dosage: UNK
  4. LYRICA [Suspect]
     Active Substance: PREGABALIN
     Dosage: 75 MG, 2X/DAY

REACTIONS (13)
  - Breast swelling [Recovered/Resolved]
  - Peripheral swelling [Recovered/Resolved]
  - Tinnitus [Unknown]
  - Insomnia [Unknown]
  - Pharyngeal inflammation [Unknown]
  - Nausea [Unknown]
  - Cheilitis [Unknown]
  - Abdominal pain [Unknown]
  - Anxiety [Unknown]
  - Vomiting [Unknown]
  - Feeling abnormal [Unknown]
  - Cataract [Unknown]
  - Eye disorder [Unknown]
